FAERS Safety Report 11150139 (Version 3)
Quarter: 2015Q2

REPORT INFORMATION
  Report Type: Spontaneous
  Country: US (occurrence: US)
  Receive Date: 20150529
  Receipt Date: 20150626
  Transmission Date: 20150821
  Serious: Yes (Hospitalization, Other)
  Sender: FDA-Public Use
  Company Number: US-009507513-1505USA012558

PATIENT
  Age: 73 Year
  Sex: Male

DRUGS (1)
  1. ASMANEX [Suspect]
     Active Substance: MOMETASONE FUROATE
     Indication: CHRONIC OBSTRUCTIVE PULMONARY DISEASE
     Dosage: STRENGTH 220 Y, 2 INHALATIONS TWICE DAILY
     Route: 055
     Dates: start: 20140730

REACTIONS (7)
  - Respiratory disorder [Recovering/Resolving]
  - Drug dose omission [Unknown]
  - Drug administration error [Unknown]
  - Cerebrovascular accident [Recovering/Resolving]
  - Hearing impaired [Recovering/Resolving]
  - Speech disorder [Unknown]
  - Product container issue [Unknown]

NARRATIVE: CASE EVENT DATE: 20140730
